FAERS Safety Report 8188522-1 (Version None)
Quarter: 2012Q1

REPORT INFORMATION
  Report Type: 
  Country: None (occurrence: None)
  Receive Date: 20120306
  Receipt Date: 20120301
  Transmission Date: 20120608
  Serious: Yes (Death)
  Sender: FDA-Public Use
  Company Number: PHHY2012BO018421

PATIENT
  Age: 53 Year
  Sex: Female

DRUGS (2)
  1. GLEEVEC [Suspect]
     Dosage: 600 MG, DAILY
  2. GLEEVEC [Suspect]
     Indication: CHRONIC MYELOID LEUKAEMIA
     Dosage: 400 MG, DAILY
     Dates: start: 20060701

REACTIONS (1)
  - DEATH [None]
